FAERS Safety Report 8134286-7 (Version None)
Quarter: 2012Q1

REPORT INFORMATION
  Report Type: 
  Country: None (occurrence: None)
  Receive Date: 20120208
  Receipt Date: 20120130
  Transmission Date: 20120608
  Serious: Yes (Other)
  Sender: FDA-Public Use
  Company Number: AUR-APL-2012-00823

PATIENT
  Age: 53 Year
  Sex: Male

DRUGS (1)
  1. METFORMIN HCL [Suspect]
     Indication: TYPE 2 DIABETES MELLITUS
     Dosage: 1700 MG (850 MG, 2 IN 1 D), ORAL
     Route: 048

REACTIONS (2)
  - GASTROINTESTINAL STOMA COMPLICATION [None]
  - POST PROCEDURAL COMPLICATION [None]
